FAERS Safety Report 7706655-8 (Version None)
Quarter: 2011Q3

REPORT INFORMATION
  Report Type: 
  Country: None (occurrence: None)
  Receive Date: 20110824
  Receipt Date: 20110818
  Transmission Date: 20111222
  Serious: Yes (Other)
  Sender: FDA-Public Use
  Company Number: US-JNJFOC-20110607429

PATIENT
  Sex: Female

DRUGS (4)
  1. CIPROFLOXACIN [Suspect]
     Indication: INFECTION
     Route: 065
  2. LEVAQUIN [Suspect]
     Indication: BACTERIAL INFECTION
     Route: 048
     Dates: start: 20080401
  3. LEVAQUIN [Suspect]
     Indication: URINARY TRACT INFECTION
     Route: 048
     Dates: start: 20080401
  4. PREDNISONE [Suspect]
     Indication: PAIN
     Route: 065

REACTIONS (1)
  - ROTATOR CUFF SYNDROME [None]
